FAERS Safety Report 14796324 (Version 1)
Quarter: 2018Q2

REPORT INFORMATION
  Report Type: Report from Study
  Country: US (occurrence: US)
  Receive Date: 20180423
  Receipt Date: 20180423
  Transmission Date: 20180711
  Serious: No
  Sender: FDA-Public Use
  Company Number: US-AMGEN-USASL2018008604

PATIENT
  Age: 53 Year
  Sex: Female

DRUGS (2)
  1. REPATHA [Suspect]
     Active Substance: EVOLOCUMAB
     Indication: TYPE IIA HYPERLIPIDAEMIA
     Dosage: 420 MG, QMO
     Route: 065
     Dates: start: 20180116
  2. REPATHA [Suspect]
     Active Substance: EVOLOCUMAB
     Indication: HYPERCHOLESTEROLAEMIA

REACTIONS (2)
  - Therapeutic response unexpected [Unknown]
  - Injection site pruritus [Unknown]

NARRATIVE: CASE EVENT DATE: 201801
